FAERS Safety Report 4763444-4 (Version None)
Quarter: 2005Q3

REPORT INFORMATION
  Report Type: 
  Country: None (occurrence: None)
  Receive Date: 20050908
  Receipt Date: 20050829
  Transmission Date: 20060218
  Serious: Yes (Other)
  Sender: FDA-Public Use
  Company Number: PHNU2005DE02991

PATIENT
  Age: 62 Year
  Sex: Male
  Weight: 95 kg

DRUGS (7)
  1. CAPTO ^CT-ARZNEIMITTEL^ [Concomitant]
     Dosage: 15 DRP, QID
     Route: 048
  2. CITALOPRAM [Concomitant]
     Dosage: 10 MG, QD
     Route: 048
  3. OLMETEC [Concomitant]
     Dosage: 40 MG, QD
     Route: 048
  4. MOXONIDINE [Concomitant]
     Dosage: 0.3 MG, QD
     Route: 048
  5. NOVAMINSULFON ^LICHTENSTEIN^ [Concomitant]
     Dosage: 15 DRP, QID
     Route: 048
  6. IBUFLAM [Concomitant]
     Dosage: 600 MG, QD
     Route: 048
  7. GLEEVEC [Suspect]
     Indication: CHRONIC MYELOID LEUKAEMIA
     Dosage: 400 MG, QD
     Route: 048
     Dates: start: 20050606

REACTIONS (3)
  - AUDIOGRAM ABNORMAL [None]
  - DEAFNESS [None]
  - DRUG TOXICITY [None]
